FAERS Safety Report 14914791 (Version 1)
Quarter: 2018Q2

REPORT INFORMATION
  Report Type: Spontaneous
  Country: US (occurrence: US)
  Receive Date: 20180501
  Receipt Date: 20180501
  Transmission Date: 20180711
  Serious: No
  Sender: FDA-Public Use
  Company Number: None

PATIENT
  Age: 77 Year
  Sex: Male
  Weight: 99.79 kg

DRUGS (3)
  1. ASPERCREME WITH LIDOCAINE PAIN RELIEVING CREME [Suspect]
     Active Substance: LIDOCAINE HYDROCHLORIDE
     Indication: MUSCULOSKELETAL STIFFNESS
     Route: 061
     Dates: start: 20180401, end: 20180404
  2. VITAMIN D [Concomitant]
     Active Substance: CHOLECALCIFEROL
  3. AREDS FORMULA [Concomitant]

REACTIONS (3)
  - Application site erythema [None]
  - Application site vesicles [None]
  - Application site pain [None]

NARRATIVE: CASE EVENT DATE: 20180401
